FAERS Safety Report 5683551-1 (Version None)
Quarter: 2008Q1

REPORT INFORMATION
  Report Type: 
  Country: None (occurrence: None)
  Receive Date: 20080326
  Receipt Date: 20080319
  Transmission Date: 20080703
  Serious: Yes (Hospitalization, Disabling, Other)
  Sender: FDA-Public Use
  Company Number: 2008SP001319

PATIENT
  Age: 59 Year
  Sex: Female
  Weight: 55 kg

DRUGS (6)
  1. PEG-INTRON [Suspect]
     Indication: HEPATITIS C
     Dosage: 100 MCG; QW; SC, 80 MCG; QW; SC, 40 MCG; QW; SC
     Route: 058
     Dates: start: 20061114, end: 20061130
  2. PEG-INTRON [Suspect]
     Indication: HEPATITIS C
     Dosage: 100 MCG; QW; SC, 80 MCG; QW; SC, 40 MCG; QW; SC
     Route: 058
     Dates: start: 20061215, end: 20070222
  3. PEG-INTRON [Suspect]
     Indication: HEPATITIS C
     Dosage: 100 MCG; QW; SC, 80 MCG; QW; SC, 40 MCG; QW; SC
     Route: 058
     Dates: start: 20070223, end: 20070824
  4. REBETOL [Suspect]
     Indication: HEPATITIS C
     Dosage: 600 MG; QD; PO, 400 MG; QD; PO
     Route: 048
     Dates: start: 20070201, end: 20070824
  5. REBETOL [Suspect]
     Indication: HEPATITIS C
     Dosage: 600 MG; QD; PO, 400 MG; QD; PO
     Route: 048
     Dates: start: 20061114
  6. NORVASC [Concomitant]

REACTIONS (11)
  - ANTI-THYROID ANTIBODY POSITIVE [None]
  - DEHYDRATION [None]
  - DIABETES MELLITUS INADEQUATE CONTROL [None]
  - DRY MOUTH [None]
  - HYPERTHYROIDISM [None]
  - HYPOTHYROIDISM [None]
  - MALAISE [None]
  - PALLANAESTHESIA [None]
  - THIRST [None]
  - TYPE 1 DIABETES MELLITUS [None]
  - URINE KETONE BODY PRESENT [None]
